FAERS Safety Report 23201019 (Version 4)
Quarter: 2023Q4

REPORT INFORMATION
  Report Type: Spontaneous
  Country: US (occurrence: US)
  Receive Date: 20231118
  Receipt Date: 20231224
  Transmission Date: 20240110
  Serious: No
  Sender: FDA-Public Use
  Company Number: US-TRAVERE-2023TVT00496

PATIENT
  Age: 50 Year
  Sex: Male

DRUGS (3)
  1. FILSPARI [Suspect]
     Active Substance: SPARSENTAN
     Indication: IgA nephropathy
     Route: 048
     Dates: start: 20230907
  2. FILSPARI [Suspect]
     Active Substance: SPARSENTAN
     Dosage: 200 MG 2 TABLET/400 MG
     Route: 048
     Dates: start: 20230920
  3. FILSPARI [Suspect]
     Active Substance: SPARSENTAN
     Route: 048

REACTIONS (5)
  - Micturition urgency [Unknown]
  - Hyperhidrosis [Unknown]
  - Fluid retention [Unknown]
  - Blood creatinine increased [Unknown]
  - Blood urea increased [Unknown]
